FAERS Safety Report 7739619-9 (Version None)
Quarter: 2011Q3

REPORT INFORMATION
  Report Type: 
  Country: None (occurrence: None)
  Receive Date: 20110906
  Receipt Date: 20110829
  Transmission Date: 20111222
  Serious: Yes (Other)
  Sender: FDA-Public Use
  Company Number: 2011MA012837

PATIENT
  Age: 55 Year
  Sex: Male

DRUGS (1)
  1. FLUOXETINE [Suspect]
     Indication: MAJOR DEPRESSION
     Dosage: 20 MG;QD;PO
     Route: 048
     Dates: start: 20110525, end: 20110616

REACTIONS (4)
  - DRY MOUTH [None]
  - VISION BLURRED [None]
  - ERECTILE DYSFUNCTION [None]
  - VISUAL IMPAIRMENT [None]
